FAERS Safety Report 22371190 (Version 1)
Quarter: 2023Q2

REPORT INFORMATION
  Report Type: Spontaneous
  Country: US (occurrence: US)
  Receive Date: 20230526
  Receipt Date: 20230526
  Transmission Date: 20230721
  Serious: Yes (Hospitalization, Other)
  Sender: FDA-Public Use
  Company Number: US-MLMSERVICE-20230508-4275139-1

PATIENT
  Age: 75 Year
  Sex: Female

DRUGS (24)
  1. CEFTRIAXONE [Suspect]
     Active Substance: CEFTRIAXONE
     Indication: Spinal cord infection
     Route: 065
  2. CEFTRIAXONE [Suspect]
     Active Substance: CEFTRIAXONE
     Indication: Soft tissue infection
  3. ALBUTEROL [Concomitant]
     Active Substance: ALBUTEROL
     Indication: Product used for unknown indication
     Dosage: UNKNOWN
  4. DOXYCYCLINE [Concomitant]
     Active Substance: DOXYCYCLINE
     Indication: Soft tissue infection
     Dosage: UNKNOWN
     Route: 065
  5. DOXYCYCLINE [Concomitant]
     Active Substance: DOXYCYCLINE
     Indication: Spinal cord infection
  6. OMEPRAZOLE [Concomitant]
     Active Substance: OMEPRAZOLE
     Indication: Product used for unknown indication
     Dosage: UNKNOWN
     Route: 065
  7. LOPERAMIDE [Concomitant]
     Active Substance: LOPERAMIDE
     Indication: Product used for unknown indication
     Dosage: UNKNOWN
     Route: 065
  8. METRONIDAZOLE [Concomitant]
     Active Substance: METRONIDAZOLE
     Indication: Soft tissue infection
     Dosage: UNKNOWN
     Route: 065
  9. METRONIDAZOLE [Concomitant]
     Active Substance: METRONIDAZOLE
     Indication: Spinal cord infection
  10. FOLIC ACID [Concomitant]
     Active Substance: FOLIC ACID
     Indication: Product used for unknown indication
     Dosage: UNKNOWN
     Route: 065
  11. CALCIUM CARBONATE [Concomitant]
     Active Substance: CALCIUM CARBONATE
     Indication: Product used for unknown indication
     Dosage: UNKNOWN
     Route: 065
  12. AMLODIPINE [Concomitant]
     Active Substance: AMLODIPINE BESYLATE
     Indication: Product used for unknown indication
     Dosage: UNKNOWN
     Route: 065
  13. ROSUVASTATIN [Concomitant]
     Active Substance: ROSUVASTATIN
     Indication: Product used for unknown indication
     Dosage: UNKNOWN
     Route: 065
  14. LISINOPRIL [Concomitant]
     Active Substance: LISINOPRIL
     Indication: Product used for unknown indication
     Dosage: UNKNOWN
     Route: 065
  15. DICLOFENAC [Concomitant]
     Active Substance: DICLOFENAC
     Indication: Product used for unknown indication
     Dosage: 1%
     Route: 061
  16. PREGABALIN [Concomitant]
     Active Substance: PREGABALIN
     Indication: Product used for unknown indication
     Dosage: UNKNOWN
     Route: 065
  17. ACETAMINOPHEN [Concomitant]
     Active Substance: ACETAMINOPHEN
     Indication: Pain management
     Dosage: UNKNOWN
     Route: 065
  18. LEVOTHYROXINE [Concomitant]
     Active Substance: LEVOTHYROXINE
     Indication: Product used for unknown indication
     Dosage: UNKNOWN
     Route: 065
  19. HYDROMORPHONE [Concomitant]
     Active Substance: HYDROMORPHONE
     Indication: Pain management
     Dosage: UNKNOWN
     Route: 065
  20. DULOXETINE [Concomitant]
     Active Substance: DULOXETINE
     Indication: Product used for unknown indication
     Dosage: UNKNOWN
     Route: 065
  21. CALCITRIOL [Concomitant]
     Active Substance: CALCITRIOL
     Indication: Product used for unknown indication
     Dosage: UNKNOWN
     Route: 065
  22. CARBOXYMETHYLCELLULOSE SODIUM [Concomitant]
     Active Substance: CARBOXYMETHYLCELLULOSE SODIUM
     Indication: Product used for unknown indication
     Dosage: UNKNOWN
     Route: 065
  23. VANCOMYCIN [Concomitant]
     Active Substance: VANCOMYCIN
     Indication: Soft tissue infection
     Dosage: UNKNOWN
     Route: 065
  24. VANCOMYCIN [Concomitant]
     Active Substance: VANCOMYCIN
     Indication: Spinal cord infection

REACTIONS (2)
  - Drug-induced liver injury [Recovered/Resolved]
  - Cholestasis [Recovered/Resolved]
